FAERS Safety Report 8759784 (Version 1)
Quarter: 2012Q4

REPORT INFORMATION
  Report Type: 
  Country: DE (occurrence: GB)
  Receive Date: 20120829
  Receipt Date: 20120829
  Transmission Date: 20130627
  Serious: Yes (Death, Life-Threatening, Other)
  Sender: FDA-Public Use
  Company Number: GB-BRISTOL-MYERS SQUIBB COMPANY-16889537

PATIENT
  Age: 60 Year
  Sex: Female

DRUGS (9)
  1. METFORMIN HCL [Suspect]
     Indication: TYPE 2 DIABETES MELLITUS
     Route: 048
     Dates: start: 20100101, end: 20120727
  2. ACETYLSALICYLIC ACID [Concomitant]
  3. AMLODIPINE BESYLATE [Concomitant]
  4. BISOPROLOL HEMIFUMARATE [Concomitant]
  5. ENALAPRIL MALEATE [Concomitant]
  6. FUROSEMIDE [Concomitant]
  7. PANTOPRAZOLE SODIUM [Concomitant]
  8. PROBIOTICA [Concomitant]
  9. THIABENDAZOLE [Concomitant]

REACTIONS (13)
  - Lactic acidosis [Fatal]
  - Toxicity to various agents [Fatal]
  - Azotaemia [Unknown]
  - Blood creatine phosphokinase MB increased [Unknown]
  - Blood creatine phosphokinase increased [Unknown]
  - Fibrin D dimer increased [Unknown]
  - Haemoglobin decreased [Unknown]
  - White blood cell count increased [Unknown]
  - Prothrombin time shortened [Unknown]
  - Activated partial thromboplastin time prolonged [Unknown]
  - Blood sodium increased [Unknown]
  - Alanine aminotransferase increased [Unknown]
  - Aspartate aminotransferase increased [Unknown]
